FAERS Safety Report 11092415 (Version 2)
Quarter: 2015Q2

REPORT INFORMATION
  Report Type: Report from Study
  Country: FR (occurrence: FR)
  Receive Date: 20150506
  Receipt Date: 20150630
  Transmission Date: 20150821
  Serious: Yes (Other)
  Sender: FDA-Public Use
  Company Number: FR-ROCHE-1571205

PATIENT
  Age: 57 Year
  Sex: Female
  Weight: 62 kg

DRUGS (3)
  1. PERTUZUMAB [Concomitant]
     Active Substance: PERTUZUMAB
     Indication: BREAST CANCER
     Route: 065
  2. TAXOTERE [Concomitant]
     Active Substance: DOCETAXEL
     Indication: BREAST CANCER
     Route: 065
  3. HERCEPTIN [Suspect]
     Active Substance: TRASTUZUMAB
     Indication: BREAST CANCER
     Route: 058
     Dates: start: 20141216, end: 20150407

REACTIONS (3)
  - Drug dose omission [Unknown]
  - Breast cancer [Recovering/Resolving]
  - Breast cancer [Recovered/Resolved]

NARRATIVE: CASE EVENT DATE: 20150414
